FAERS Safety Report 4461558-X (Version None)
Quarter: 2004Q3

REPORT INFORMATION
  Report Type: 
  Country: None (occurrence: None)
  Receive Date: 20040910
  Receipt Date: 20040219
  Transmission Date: 20050211
  Serious: Yes (Hospitalization)
  Sender: FDA-Public Use
  Company Number: TNZUS200400021 (0)

PATIENT
  Age: 56 Year
  Sex: Female

DRUGS (2)
  1. INNOHEP [Suspect]
     Indication: PULMONARY EMBOLISM
     Dosage: 175 IU/KG DAILY, SUBCUTANEOUS
     Dates: start: 20040126, end: 20040204
  2. INNOHEP [Suspect]
     Indication: PULMONARY EMBOLISM
     Dosage: 175 IU/KG DAILY, SUBCUTANEOUS
     Dates: start: 20040208

REACTIONS (2)
  - CONDITION AGGRAVATED [None]
  - PULMONARY EMBOLISM [None]
